FAERS Safety Report 7985894-5 (Version None)
Quarter: 2011Q4

REPORT INFORMATION
  Report Type: 
  Country: None (occurrence: None)
  Receive Date: 20111216
  Receipt Date: 20111206
  Transmission Date: 20120403
  Serious: Yes (Hospitalization, Other)
  Sender: FDA-Public Use
  Company Number: US-BAYER-201025751NA

PATIENT
  Age: 38 Year
  Sex: Female
  Weight: 64 kg

DRUGS (6)
  1. ALLEGRA-D 12 HOUR [Concomitant]
  2. LISINOPRIL [Concomitant]
     Indication: HYPERTENSION
  3. YASMIN [Suspect]
     Indication: CONTRACEPTION
     Route: 048
     Dates: start: 20030701, end: 20080701
  4. DROSPIRENONE AND ETHINYL ESTRADIOL [Suspect]
     Indication: CONTRACEPTION
     Route: 048
     Dates: start: 20080801, end: 20100201
  5. PREVACID [Concomitant]
  6. YAZ [Suspect]
     Indication: CONTRACEPTION
     Route: 048
     Dates: start: 20100301, end: 20100401

REACTIONS (7)
  - BILIARY DYSKINESIA [None]
  - CHOLELITHIASIS [None]
  - CHOLECYSTECTOMY [None]
  - OESOPHAGEAL STENOSIS [None]
  - CHOLECYSTITIS CHRONIC [None]
  - DYSPHAGIA [None]
  - GASTRITIS [None]
